FAERS Safety Report 8014950-0 (Version None)
Quarter: 2011Q4

REPORT INFORMATION
  Report Type: 
  Country: None (occurrence: None)
  Receive Date: 20111229
  Receipt Date: 20111227
  Transmission Date: 20120403
  Serious: Yes (Death, Hospitalization)
  Sender: FDA-Public Use
  Company Number: JP-ABBOTT-10P-087-0627174-00

PATIENT
  Sex: Male

DRUGS (8)
  1. PREZISTA [Suspect]
     Indication: HIV INFECTION
     Route: 048
     Dates: start: 20090401, end: 20100104
  2. NORVIR [Suspect]
     Indication: HIV INFECTION
     Route: 048
     Dates: start: 20090401, end: 20100104
  3. ISENTRESS [Suspect]
     Indication: HIV INFECTION
     Route: 048
     Dates: start: 20090401, end: 20100104
  4. MS CONTIN [Concomitant]
     Indication: NEURALGIA
     Dates: start: 20090619, end: 20100104
  5. NOVACT M FUJISAWA [Concomitant]
     Indication: FACTOR IX DEFICIENCY
     Dates: start: 20090401, end: 20100104
  6. EPIVIR [Suspect]
     Indication: HIV INFECTION
     Route: 048
     Dates: start: 20090401, end: 20100104
  7. GARENOXACIN MESYLATE [Concomitant]
     Indication: PNEUMONIA
     Dates: start: 20091202, end: 20091209
  8. FLUCONAZOLE [Concomitant]
     Indication: ORAL CANDIDIASIS
     Dates: start: 20091202, end: 20091209

REACTIONS (1)
  - BRAIN STEM HAEMORRHAGE [None]
